FAERS Safety Report 7425532-3 (Version None)
Quarter: 2011Q2

REPORT INFORMATION
  Report Type: 
  Country: None (occurrence: None)
  Receive Date: 20110420
  Receipt Date: 20110414
  Transmission Date: 20111010
  Serious: Yes (Hospitalization, Other)
  Sender: FDA-Public Use
  Company Number: US-B.I. PHARMACEUTICALS,INC./RIDGEFIELD-2011-BP-01213BP

PATIENT
  Sex: Female

DRUGS (13)
  1. CALAN [Concomitant]
     Dates: start: 20110121
  2. PRADAXA [Suspect]
     Indication: ANTICOAGULANT THERAPY
  3. CORDARONE [Concomitant]
     Indication: ATRIAL FIBRILLATION
     Dosage: 800 MG
     Route: 048
     Dates: start: 20101015
  4. COUMADIN [Concomitant]
     Dosage: 10 MG
     Route: 048
  5. MAGNESIUM OXIDE [Concomitant]
  6. DIZAREL [Concomitant]
     Indication: HYPERTENSION
  7. BYSTOLIC [Concomitant]
     Indication: ATRIAL FIBRILLATION
     Dosage: 10 MG
     Route: 048
     Dates: start: 20100809
  8. MAGNESIUM [Concomitant]
     Indication: CARDIAC DISORDER
  9. MAGNESIUM [Concomitant]
     Indication: ATRIAL FIBRILLATION
  10. BYSTOLIC [Concomitant]
     Indication: CARDIAC DISORDER
  11. CORDARONE [Concomitant]
     Indication: CARDIAC DISORDER
  12. DILTIAZEM CD (CARDIZEM CD) [Concomitant]
     Dosage: 240 MG
     Route: 048
     Dates: start: 20110102
  13. PRADAXA [Suspect]
     Indication: ATRIAL FIBRILLATION
     Dosage: 300 MG
     Route: 048
     Dates: start: 20101223

REACTIONS (8)
  - PRURITUS [None]
  - HYPERSENSITIVITY [None]
  - DYSPNOEA [None]
  - URTICARIA [None]
  - GENERALISED OEDEMA [None]
  - OXYGEN SATURATION DECREASED [None]
  - EYE SWELLING [None]
  - PHARYNGEAL OEDEMA [None]
